FAERS Safety Report 18383637 (Version 1)
Quarter: 2020Q4

REPORT INFORMATION
  Report Type: Spontaneous
  Country: NZ (occurrence: NZ)
  Receive Date: 20201014
  Receipt Date: 20201014
  Transmission Date: 20210114
  Serious: Yes (Other)
  Sender: FDA-Public Use
  Company Number: NZ-MYLANLABS-2020M1086175

PATIENT
  Sex: Male

DRUGS (1)
  1. CLOZARIL [Suspect]
     Active Substance: CLOZAPINE
     Indication: SCHIZOPHRENIA
     Dosage: UNK
     Route: 048
     Dates: start: 20200907, end: 20201008

REACTIONS (4)
  - Salivary hypersecretion [Unknown]
  - Drug intolerance [Unknown]
  - Drug ineffective [Unknown]
  - Constipation [Unknown]

NARRATIVE: CASE EVENT DATE: 2020
